FAERS Safety Report 7063574-0 (Version None)
Quarter: 2010Q4

REPORT INFORMATION
  Report Type: 
  Country: None (occurrence: None)
  Receive Date: 20101026
  Receipt Date: 20100803
  Transmission Date: 20110411
  Serious: Yes (Death, Other)
  Sender: FDA-Public Use
  Company Number: US-AMGEN-QUU425009

PATIENT

DRUGS (24)
  1. NPLATE [Suspect]
     Indication: IDIOPATHIC THROMBOCYTOPENIC PURPURA
     Dosage: 180 A?G, QWK
     Route: 058
     Dates: start: 20090618, end: 20090709
  2. RITUXIMAB [Concomitant]
     Dosage: 660 MG, UNK
     Route: 042
  3. CYCLOPHOSPHAMIDE [Concomitant]
     Dosage: 720 MG/M2, Q3WK
     Route: 042
     Dates: start: 20071226
  4. DOXORUBICIN HYDROCHLORIDE [Concomitant]
     Dosage: 81 MG, UNK
     Route: 042
  5. VINCRISTINE SULFATE [Concomitant]
     Dosage: 2 MG, UNK
     Route: 042
  6. PREDNISOLONE [Concomitant]
  7. CLOPIDOGREL BISULFATE [Concomitant]
     Dosage: 75 MG, QD
     Route: 048
  8. LANSOPRAZOLE [Concomitant]
     Dosage: 30 MG, QD
     Route: 048
  9. MONTELUKAST [Concomitant]
     Dosage: 10 MG, QD
     Route: 048
  10. PRENATAL VITAMINS [Concomitant]
     Dosage: UNK UNK, QD
     Route: 048
  11. ASPIRIN [Concomitant]
     Dosage: 81 MG, QD
     Route: 048
  12. DEXAMETHASONE [Concomitant]
     Dosage: 10 MG, UNK
     Route: 042
  13. PALONOSETRON HYDROCHLORIDE [Concomitant]
     Dosage: .25 MG, UNK
     Route: 042
  14. DIPHENHYDRAMINE HCL [Concomitant]
     Dosage: 50 MG, UNK
     Route: 042
  15. ACETAMINOPHEN [Concomitant]
     Dosage: 325 MG, UNK
     Route: 048
  16. METHYLPREDNISOLONE SODIUM SUCCINATE [Concomitant]
     Dosage: 100 MG, UNK
     Route: 042
  17. CYANOCOBALAMIN [Concomitant]
     Dosage: 1000 A?G, UNK
     Route: 048
  18. CIPROFLOXACIN [Concomitant]
     Dosage: 500 MG, BID
     Route: 048
  19. PROCHLORPERAZINE EDISYLATE [Concomitant]
     Dosage: 10 MG, PRN
     Route: 048
  20. PROCHLORPERAZINE EDISYLATE [Concomitant]
     Dosage: UNK UNK, PRN
     Route: 054
  21. ENOXAPARIN SODIUM [Concomitant]
     Dosage: 120 MG, QD
     Route: 058
  22. GUAIFENESIN [Concomitant]
     Dosage: 600 MG, Q12H
     Route: 048
  23. PREDNISONE [Concomitant]
     Dosage: 20 MG, TID
     Route: 048
  24. TUSSIONEX [Concomitant]
     Dosage: 5 ML, PRN
     Route: 048

REACTIONS (3)
  - ACUTE MYELOID LEUKAEMIA [None]
  - DEATH [None]
  - DRUG INEFFECTIVE [None]
